FAERS Safety Report 7198493-2 (Version None)
Quarter: 2010Q4

REPORT INFORMATION
  Report Type: 
  Country: None (occurrence: None)
  Receive Date: 20101227
  Receipt Date: 20101221
  Transmission Date: 20110411
  Serious: Yes (Death, Hospitalization)
  Sender: FDA-Public Use
  Company Number: PHHY2010US66420

PATIENT
  Sex: Male
  Weight: 81.633 kg

DRUGS (1)
  1. EXJADE [Suspect]
     Indication: NEOPLASM
     Dosage: 2000 MG OD
     Route: 048
     Dates: start: 20100101, end: 20100801

REACTIONS (7)
  - ASPIRATION PLEURAL CAVITY [None]
  - DIAPHRAGMATIC INJURY [None]
  - HAEMORRHAGE [None]
  - PLEURAL EFFUSION [None]
  - PNEUMONIA [None]
  - PROCEDURAL COMPLICATION [None]
  - SHOCK HAEMORRHAGIC [None]
